FAERS Safety Report 7752339-X (Version None)
Quarter: 2011Q3

REPORT INFORMATION
  Report Type: 
  Country: None (occurrence: None)
  Receive Date: 20110915
  Receipt Date: 20110901
  Transmission Date: 20111222
  Serious: Yes (Hospitalization, Other)
  Sender: FDA-Public Use
  Company Number: US-ELI_LILLY_AND_COMPANY-US201104004161

PATIENT
  Sex: Male

DRUGS (32)
  1. CAMPRAL [Concomitant]
  2. ASPIRIN [Concomitant]
     Dosage: 81 MG, QD
  3. NIACIN [Concomitant]
  4. MUCOMYST [Concomitant]
  5. HEPARIN [Concomitant]
  6. MILK OF MAGNESIA TAB [Concomitant]
  7. MULTI-VITAMIN [Concomitant]
  8. ALBUTEROL [Concomitant]
  9. ALPRAZOLAM [Concomitant]
  10. HYDROMORPHONE HCL [Concomitant]
  11. LOVAZA [Concomitant]
  12. CYMBALTA [Suspect]
     Dosage: 60 MG, UNK
  13. FOLIC ACID [Concomitant]
  14. ONDANSETRON [Concomitant]
  15. PHENYLEPHRINE HCL [Concomitant]
  16. PROMETHAZINE [Concomitant]
  17. ALLOPURINOL [Concomitant]
     Dosage: 100 MG, QD
  18. CLONIDINE [Concomitant]
  19. FLUTICASONE PROPIONATE [Concomitant]
  20. GUAIFENESIN [Concomitant]
  21. LEVOFLOXACIN [Concomitant]
  22. MIDAZOLAM HCL [Concomitant]
  23. PROPRANOLOL [Concomitant]
  24. ZOLPIDEM [Concomitant]
  25. HYDRALAZINE HCL [Concomitant]
  26. METHYLPREDNISOLONE [Concomitant]
  27. PRISTIQ [Concomitant]
     Dosage: 50 MG, QD
  28. TYLENOL                                 /SCH/ [Concomitant]
  29. BISACODYL [Concomitant]
  30. DOCUSATE [Concomitant]
  31. HYDROCODONE [Concomitant]
  32. PANTOPRAZOLE [Concomitant]

REACTIONS (1)
  - LUNG ADENOCARCINOMA [None]
